FAERS Safety Report 22761037 (Version 4)
Quarter: 2023Q4

REPORT INFORMATION
  Report Type: Spontaneous
  Country: US (occurrence: US)
  Receive Date: 20230728
  Receipt Date: 20231018
  Transmission Date: 20240110
  Serious: No
  Sender: FDA-Public Use
  Company Number: US-LUNDBECK-DKLU3065027

PATIENT
  Age: 60 Year
  Sex: Male

DRUGS (3)
  1. VYEPTI [Suspect]
     Active Substance: EPTINEZUMAB-JJMR
     Indication: Migraine
     Route: 041
     Dates: start: 202112
  2. VYEPTI [Suspect]
     Active Substance: EPTINEZUMAB-JJMR
     Indication: Cervicogenic headache
     Route: 041
     Dates: start: 20230420
  3. VYEPTI [Suspect]
     Active Substance: EPTINEZUMAB-JJMR
     Indication: Vestibular migraine
     Route: 041
     Dates: start: 20230713

REACTIONS (7)
  - Therapeutic response shortened [Recovering/Resolving]
  - Malaise [Not Recovered/Not Resolved]
  - Feeling abnormal [Not Recovered/Not Resolved]
  - Daydreaming [Not Recovered/Not Resolved]
  - Agitation [Not Recovered/Not Resolved]
  - Drug intolerance [Not Recovered/Not Resolved]
  - Drug ineffective [Unknown]
